FAERS Safety Report 21958797 (Version 1)
Quarter: 2023Q1

REPORT INFORMATION
  Report Type: Spontaneous
  Country: US (occurrence: US)
  Receive Date: 20230206
  Receipt Date: 20230206
  Transmission Date: 20230417
  Serious: Yes (Other)
  Sender: FDA-Public Use
  Company Number: US-GLAXOSMITHKLINE-US2023GSK016768

PATIENT
  Age: 50 Year
  Sex: Male

DRUGS (3)
  1. TERBINAFINE HYDROCHLORIDE [Suspect]
     Active Substance: TERBINAFINE HYDROCHLORIDE
     Indication: Body tinea
     Dosage: 250 MG
     Route: 048
  2. ITRACONAZOLE [Concomitant]
     Active Substance: ITRACONAZOLE
     Indication: Body tinea
     Dosage: 200 MG, QD
     Route: 065
  3. CICLOPIROX [Concomitant]
     Active Substance: CICLOPIROX
     Indication: Body tinea
     Dosage: UNK
     Route: 061

REACTIONS (2)
  - Pathogen resistance [Unknown]
  - Drug resistance [Unknown]
